FAERS Safety Report 8440463-8 (Version None)
Quarter: 2012Q2

REPORT INFORMATION
  Report Type: 
  Country: None (occurrence: None)
  Receive Date: 20120615
  Receipt Date: 20120608
  Transmission Date: 20120825
  Serious: Yes (Other)
  Sender: FDA-Public Use
  Company Number: US-GLAXOSMITHKLINE-A0980633A

PATIENT
  Age: 10 Year
  Sex: Male

DRUGS (1)
  1. LAMICTAL [Suspect]
     Indication: PRODUCT USED FOR UNKNOWN INDICATION
     Dosage: 20MG TWICE PER DAY
     Route: 048

REACTIONS (5)
  - LOCALISED INFECTION [None]
  - ERYTHEMA [None]
  - NAIL DISCOLOURATION [None]
  - MALNUTRITION [None]
  - STEVENS-JOHNSON SYNDROME [None]
